FAERS Safety Report 7576520-8 (Version None)
Quarter: 2011Q2

REPORT INFORMATION
  Report Type: 
  Country: None (occurrence: None)
  Receive Date: 20110628
  Receipt Date: 20091027
  Transmission Date: 20111010
  Serious: Yes (Other)
  Sender: FDA-Public Use
  Company Number: US-BAYER-200937711NA

PATIENT
  Age: 59 Year
  Sex: Male
  Weight: 106.58 kg

DRUGS (13)
  1. LEVAQUIN [Concomitant]
     Dosage: 500 MG, UNK
     Route: 042
     Dates: start: 20060621
  2. TRASYLOL [Suspect]
     Indication: AORTIC VALVE REPLACEMENT
     Dosage: 1 ML TEST DOSE
     Dates: start: 20060621, end: 20060621
  3. TRASYLOL [Suspect]
     Indication: AORTIC BYPASS
  4. TOPROL-XL [Concomitant]
     Dosage: 50 MG, QD
     Route: 048
     Dates: start: 20050426, end: 20060601
  5. POTASSIUM CHLORIDE [Concomitant]
     Route: 048
  6. LISINOPRIL [Concomitant]
     Dosage: 5 MG, QD
     Route: 048
  7. VERSED [Concomitant]
     Dosage: 5 MG, UNK
     Route: 042
     Dates: start: 20060621
  8. THROMBIN LOCAL SOLUTION [Concomitant]
     Dosage: 5000 U/ML, UNK
     Route: 042
     Dates: start: 20060621
  9. GLIPIZIDE [Concomitant]
     Dosage: 5 MG, BID
     Route: 048
     Dates: start: 20040728
  10. HEPARIN [Concomitant]
     Dosage: 1000 U/ML, UNK
     Route: 042
     Dates: start: 20060621
  11. VANCOMYCIN [Concomitant]
     Dosage: 1000 MG/ML, UNK
     Route: 042
     Dates: start: 20060621
  12. TRASYLOL [Suspect]
     Indication: CORONARY ARTERY BYPASS
     Dosage: 10000 U, UNK
     Route: 042
     Dates: start: 20060621, end: 20060621
  13. NITROGLYCERIN [Concomitant]
     Dosage: 0.2 MG, UNK
     Route: 062

REACTIONS (6)
  - RENAL FAILURE ACUTE [None]
  - INJURY [None]
  - UNEVALUABLE EVENT [None]
  - RENAL FAILURE [None]
  - PSYCHIATRIC SYMPTOM [None]
  - PAIN [None]
